FAERS Safety Report 8781326 (Version 1)
Quarter: 2012Q4

REPORT INFORMATION
  Report Type: 
  Country: CA (occurrence: CA)
  Receive Date: 20120913
  Receipt Date: 20120913
  Transmission Date: 20130627
  Serious: Yes (Other)
  Sender: FDA-Public Use
  Company Number: CA-ASTRAZENECA-2012SE65226

PATIENT
  Age: 46 Year
  Sex: Male
  Weight: 108.9 kg

DRUGS (1)
  1. SYMBICORT TURBUHALER [Suspect]
     Dosage: 200 unknown frequency
     Route: 055
     Dates: start: 20120611, end: 20120712

REACTIONS (1)
  - Acute psychosis [Unknown]
